FAERS Safety Report 5680864-4 (Version None)
Quarter: 2008Q1

REPORT INFORMATION
  Report Type: 
  Country: None (occurrence: None)
  Receive Date: 20080326
  Receipt Date: 20080317
  Transmission Date: 20080703
  Serious: Yes (Other)
  Sender: FDA-Public Use
  Company Number: DE-PFIZER INC-2008025208

PATIENT
  Age: 75 Year
  Sex: Female

DRUGS (1)
  1. SORTIS [Suspect]
     Route: 048

REACTIONS (1)
  - TYPE 2 DIABETES MELLITUS [None]
